FAERS Safety Report 21360994 (Version 1)
Quarter: 2022Q3

REPORT INFORMATION
  Report Type: Spontaneous
  Country: JP (occurrence: JP)
  Receive Date: 20220921
  Receipt Date: 20220921
  Transmission Date: 20221027
  Serious: Yes (Hospitalization)
  Sender: FDA-Public Use
  Company Number: JP-Eisai-202207907_HAL_P_1

PATIENT
  Sex: Female

DRUGS (3)
  1. HALAVEN [Suspect]
     Active Substance: ERIBULIN MESYLATE
     Indication: Breast cancer recurrent
     Dosage: DOSE UNKNOWN
     Route: 041
     Dates: start: 20220614, end: 20220802
  2. HERCEPTIN [Concomitant]
     Active Substance: TRASTUZUMAB
     Indication: Breast cancer recurrent
     Dosage: DOSE AND FREQUENCY UNKNOWN
     Dates: start: 20220614, end: 20220802
  3. PERJETA [Concomitant]
     Active Substance: PERTUZUMAB
     Indication: Breast cancer recurrent
     Dosage: DOSE AND FREQUENCY UNKNOWN
     Dates: start: 20220614, end: 20220802

REACTIONS (2)
  - Dermatitis [Unknown]
  - Pyrexia [Not Recovered/Not Resolved]

NARRATIVE: CASE EVENT DATE: 20220808
